FAERS Safety Report 19591543 (Version 1)
Quarter: 2021Q3

REPORT INFORMATION
  Report Type: Spontaneous
  Country: IN (occurrence: IN)
  Receive Date: 20210721
  Receipt Date: 20210721
  Transmission Date: 20211014
  Serious: Yes (Other)
  Sender: FDA-Public Use
  Company Number: NVSC2021IN160085

PATIENT
  Age: 90 Year
  Sex: Male

DRUGS (2)
  1. PAGENAX [Suspect]
     Active Substance: BROLUCIZUMAB
     Indication: CHOROIDAL NEOVASCULARISATION
  2. PAGENAX [Suspect]
     Active Substance: BROLUCIZUMAB
     Indication: POLYPOIDAL CHOROIDAL VASCULOPATHY
     Dosage: 0.05 ML, QMO
     Route: 047
     Dates: start: 20210112

REACTIONS (2)
  - Product use in unapproved indication [Unknown]
  - Retinal haemorrhage [Unknown]

NARRATIVE: CASE EVENT DATE: 20210112
